FAERS Safety Report 12042757 (Version 2)
Quarter: 2016Q1

REPORT INFORMATION
  Report Type: Spontaneous
  Country: IT (occurrence: IT)
  Receive Date: 20160208
  Receipt Date: 20160226
  Transmission Date: 20160526
  Serious: Yes (Life-Threatening)
  Sender: FDA-Public Use
  Company Number: IT-PFIZER INC-2016071956

PATIENT
  Age: 57 Week
  Sex: Male

DRUGS (8)
  1. LANSOPRAZOLE. [Concomitant]
     Active Substance: LANSOPRAZOLE
     Dosage: 10 MG, UNK
  2. CLIPPER [Concomitant]
     Active Substance: BECLOMETHASONE DIPROPIONATE
     Dosage: 120 MG, UNK
  3. CLENIL /00212602/ [Concomitant]
     Active Substance: BECLOMETHASONE DIPROPIONATE
  4. CLARITHROMYCIN. [Concomitant]
     Active Substance: CLARITHROMYCIN
     Dosage: 120 MG, UNK
  5. SALBUTAMOL [Concomitant]
     Active Substance: ALBUTEROL
  6. TACHIPIRINA [Concomitant]
     Active Substance: ACETAMINOPHEN
  7. SOLU-MEDROL [Suspect]
     Active Substance: METHYLPREDNISOLONE SODIUM SUCCINATE
     Indication: RESPIRATORY DISORDER
     Dosage: 8 MG, DAILY
     Route: 042
     Dates: start: 20160201, end: 20160202
  8. PIPERACILLIN AND TAZOBACTAM [Concomitant]
     Active Substance: PIPERACILLIN SODIUM\TAZOBACTAM SODIUM
     Dosage: 2100 MG, UNK
     Route: 040
     Dates: start: 20160127, end: 20160202

REACTIONS (6)
  - Urticaria [Recovered/Resolved]
  - Agitation [Recovered/Resolved]
  - Dyspnoea [Recovered/Resolved]
  - Anaphylactic shock [Recovered/Resolved]
  - Pruritus [Recovered/Resolved]
  - Erythema [Recovered/Resolved]

NARRATIVE: CASE EVENT DATE: 20160201
